FAERS Safety Report 9548473 (Version 1)
Quarter: 2013Q2

REPORT INFORMATION
  Report Type: Spontaneous
  Country: US (occurrence: None)
  Receive Date: 20130606
  Receipt Date: 20130606
  Transmission Date: 20140414
  Serious: Yes (Other)
  Sender: FDA-Public Use
  Company Number: 1302USA007236

PATIENT
  Age: 87 Year
  Sex: Female

DRUGS (1)
  1. ZIOPTAN [Suspect]
     Dates: end: 201301

REACTIONS (2)
  - Headache [None]
  - Eye pain [None]
